FAERS Safety Report 8853708 (Version 5)
Quarter: 2014Q1

REPORT INFORMATION
  Report Type: Spontaneous
  Country: US (occurrence: US)
  Receive Date: 20121022
  Receipt Date: 20140128
  Transmission Date: 20141002
  Serious: Yes (Hospitalization, Other)
  Sender: FDA-Public Use
  Company Number: US-009507513-1210USA006317

PATIENT
  Sex: Female
  Weight: 94.79 kg

DRUGS (12)
  1. FOSAMAX [Suspect]
     Indication: OSTEOPOROSIS
     Dosage: 70 MG, UNK
     Route: 048
     Dates: start: 20020904, end: 20080509
  2. FOSAMAX [Suspect]
     Dosage: 70 MG, UNK
     Route: 048
     Dates: start: 20100722, end: 201110
  3. ALENDRONATE SODIUM [Suspect]
     Indication: OSTEOPOROSIS
     Dosage: 70 MG, UNK
     Route: 048
     Dates: start: 20080528, end: 20100514
  4. FOSAMAX [Suspect]
     Route: 048
  5. CHOLECALCIFEROL [Concomitant]
     Dosage: 2000 IU, QD
     Route: 048
     Dates: start: 2003
  6. CYANOCOBALAMIN [Concomitant]
     Dosage: 250 MG, QD
     Route: 048
     Dates: start: 2002
  7. FOLVITE [Concomitant]
     Dosage: 400 MICROGRAM, QD
     Dates: start: 2002
  8. OCUVITE [Concomitant]
     Dosage: 1 DF, QD
     Dates: start: 2002
  9. IRON (UNSPECIFIED) [Concomitant]
     Dosage: 325 MG, QD
     Dates: start: 2002
  10. CALCIUM (UNSPECIFIED) [Concomitant]
     Dosage: 500 MG, QD
     Dates: start: 2002
  11. IBUPROFEN [Concomitant]
     Indication: RHEUMATOID ARTHRITIS
     Dosage: UNK, PRN
  12. ALEVE [Concomitant]
     Indication: RHEUMATOID ARTHRITIS
     Dosage: UNK, PRN

REACTIONS (44)
  - Intramedullary rod insertion [Recovering/Resolving]
  - Intramedullary rod insertion [Recovering/Resolving]
  - Open reduction of fracture [Unknown]
  - Forearm fracture [Unknown]
  - Femur fracture [Recovering/Resolving]
  - Femur fracture [Recovering/Resolving]
  - Low turnover osteopathy [Unknown]
  - Anxiety [Unknown]
  - Muscle strain [Recovering/Resolving]
  - Ligament sprain [Unknown]
  - Chronic obstructive pulmonary disease [Not Recovered/Not Resolved]
  - Depression [Unknown]
  - Cataract operation [Unknown]
  - Cataract [Unknown]
  - Supraventricular extrasystoles [Recovered/Resolved]
  - Haemorrhagic anaemia [Unknown]
  - Urinary tract infection [Unknown]
  - Blood thyroid stimulating hormone increased [Unknown]
  - Macular degeneration [Unknown]
  - Intervertebral disc degeneration [Unknown]
  - Aortic valve incompetence [Unknown]
  - Tricuspid valve incompetence [Unknown]
  - Dilatation atrial [Unknown]
  - QRS axis abnormal [Unknown]
  - Abnormal weight gain [Not Recovered/Not Resolved]
  - Muscle strain [Unknown]
  - Palpitations [Unknown]
  - Fatigue [Unknown]
  - Inadequate diet [Unknown]
  - Contusion [Unknown]
  - Fall [Unknown]
  - Soft tissue injury [Unknown]
  - Aortic calcification [Unknown]
  - Face injury [Unknown]
  - Leukocytosis [Unknown]
  - Synovial cyst [Unknown]
  - Osteoarthritis [Unknown]
  - Oxygen saturation decreased [Unknown]
  - Pleural effusion [Unknown]
  - Time perception altered [Unknown]
  - Constipation [Recovered/Resolved]
  - Arthralgia [Unknown]
  - Arthralgia [Unknown]
  - Back pain [Unknown]
